FAERS Safety Report 7954965-1 (Version None)
Quarter: 2011Q4

REPORT INFORMATION
  Report Type: 
  Country: None (occurrence: None)
  Receive Date: 20111202
  Receipt Date: 20111128
  Transmission Date: 20120403
  Serious: No
  Sender: FDA-Public Use
  Company Number: US-B.I. PHARMACEUTICALS,INC./RIDGEFIELD-2011-BP-05755BP

PATIENT
  Sex: Female

DRUGS (12)
  1. CARVEDILOL [Concomitant]
     Indication: HYPERTENSION
  2. DILTIAZEM HCL [Concomitant]
     Indication: ATRIAL FIBRILLATION
  3. FLUCONAZOLE [Concomitant]
  4. PRADAXA [Suspect]
     Indication: ANTICOAGULANT THERAPY
     Dosage: 300 MG
     Route: 048
     Dates: start: 20110226
  5. OXYBUTYNIN [Concomitant]
  6. TRAVATAN [Concomitant]
     Indication: GLAUCOMA
  7. CARVEDILOL [Concomitant]
     Indication: HEART RATE IRREGULAR
     Dosage: 6.25 MG
     Route: 048
  8. GENTEAL [Concomitant]
     Indication: DRY EYE
  9. PRADAXA [Suspect]
     Indication: HYPERTENSION
  10. PRADAXA [Suspect]
     Indication: ATRIAL FIBRILLATION
  11. NITROGLYCERIN [Concomitant]
     Indication: ANGINA PECTORIS
  12. DILTIAZEM HCL [Concomitant]
     Indication: HEART RATE IRREGULAR
     Dosage: 240 MG
     Route: 048

REACTIONS (4)
  - BRONCHITIS [None]
  - WHEEZING [None]
  - CONTUSION [None]
  - CHEST PAIN [None]
